FAERS Safety Report 10282151 (Version 2)
Quarter: 2014Q3

REPORT INFORMATION
  Report Type: Spontaneous
  Country: FR (occurrence: FR)
  Receive Date: 20140707
  Receipt Date: 20140707
  Transmission Date: 20150326
  Serious: Yes (Other)
  Sender: FDA-Public Use
  Company Number: FR-ACTAVIS-2014-13731

PATIENT
  Age: 67 Year
  Sex: Male

DRUGS (1)
  1. CEFUROXIME SODIUM (UNKNOWN) [Suspect]
     Active Substance: CEFUROXIME SODIUM
     Indication: ANTIBIOTIC PROPHYLAXIS
     Dosage: CONCENTRATION: 1 MG/0.1ML, DOSE UNKNOWN, TOTAL
     Route: 031
     Dates: start: 201203

REACTIONS (3)
  - Accidental overdose [Not Recovered/Not Resolved]
  - Maculopathy [Not Recovered/Not Resolved]
  - Off label use [Not Recovered/Not Resolved]
